FAERS Safety Report 4700290-1 (Version None)
Quarter: 2005Q2

REPORT INFORMATION
  Report Type: 
  Country: None (occurrence: None)
  Receive Date: 20050627
  Receipt Date: 19970731
  Transmission Date: 20051028
  Serious: Yes (Other)
  Sender: FDA-Public Use
  Company Number: PHHO1997BR04117

PATIENT
  Sex: Male
  Weight: 78 kg

DRUGS (3)
  1. HIGROTON [Concomitant]
     Dosage: 12.5 MG, UNK
     Dates: start: 19970829
  2. DIOVAN [Suspect]
     Dosage: 80 MG, QD
     Route: 048
     Dates: start: 19970702
  3. DIOVAN [Suspect]
     Dosage: 80 MG, BID
     Route: 048
     Dates: start: 19970731

REACTIONS (3)
  - ANAL FISSURE [None]
  - CONSTIPATION [None]
  - PRURITUS [None]
